FAERS Safety Report 9332793 (Version 1)
Quarter: 2013Q2

REPORT INFORMATION
  Report Type: Spontaneous
  Country: AU (occurrence: None)
  Receive Date: 20130603
  Receipt Date: 20130603
  Transmission Date: 20140414
  Serious: Yes (Hospitalization)
  Sender: FDA-Public Use
  Company Number: B0895665A

PATIENT
  Age: 18 Month
  Sex: Female
  Weight: 19.8 kg

DRUGS (1)
  1. LAMOTRIGINE [Suspect]
     Indication: PRODUCT USED FOR UNKNOWN INDICATION
     Route: 048

REACTIONS (8)
  - Accidental exposure to product by child [None]
  - Delirium [None]
  - Abnormal behaviour [None]
  - Depressed level of consciousness [None]
  - Hypertonia [None]
  - Choreoathetosis [None]
  - Dyskinesia [None]
  - Drug level above therapeutic [None]
